FAERS Safety Report 6304744-6 (Version None)
Quarter: 2009Q3

REPORT INFORMATION
  Report Type: 
  Country: None (occurrence: None)
  Receive Date: 20090811
  Receipt Date: 20090804
  Transmission Date: 20100115
  Serious: Yes (Death, Hospitalization)
  Sender: FDA-Public Use
  Company Number: A0801411A

PATIENT
  Sex: Male

DRUGS (2)
  1. SERETIDE [Suspect]
     Indication: ASTHMA
     Dosage: 1PUFF TWICE PER DAY
     Route: 055
     Dates: start: 20070101, end: 20090108
  2. FORMOTEROL FUMARATE [Concomitant]
     Dosage: 400MG TWICE PER DAY
     Route: 065
     Dates: start: 20070101, end: 20090101

REACTIONS (3)
  - APNOEA [None]
  - FATIGUE [None]
  - PLEURAL EFFUSION [None]
